FAERS Safety Report 6604519-4 (Version None)
Quarter: 2010Q1

REPORT INFORMATION
  Report Type: 
  Country: None (occurrence: None)
  Receive Date: 20100226
  Receipt Date: 20091109
  Transmission Date: 20100710
  Serious: No
  Sender: FDA-Public Use
  Company Number: A0816087A

PATIENT
  Sex: Male

DRUGS (2)
  1. LAMOTRIGINE [Suspect]
     Indication: BIPOLAR DISORDER
     Dosage: 50MG PER DAY
     Route: 048
     Dates: start: 20091007
  2. PROVIODINE [Concomitant]

REACTIONS (1)
  - NIGHTMARE [None]
